FAERS Safety Report 9007518 (Version 3)
Quarter: 2013Q2

REPORT INFORMATION
  Report Type: Spontaneous
  Country: IT (occurrence: IT)
  Receive Date: 20130111
  Receipt Date: 20130408
  Transmission Date: 20140414
  Serious: Yes (Other)
  Sender: FDA-Public Use
  Company Number: IT-BRISTOL-MYERS SQUIBB COMPANY-17160706

PATIENT
  Age: 84 Year
  Sex: Male

DRUGS (9)
  1. COUMADIN TABS 5 MG [Suspect]
     Indication: PROPHYLAXIS
     Dosage: LAST DOSE: 19NOV12,17DEC12
     Route: 048
     Dates: start: 20110401, end: 20121217
  2. COUMADIN TABS 5 MG [Interacting]
     Indication: ATRIAL FIBRILLATION
     Dosage: LAST DOSE: 19NOV12,17DEC12
     Route: 048
     Dates: start: 20110401, end: 20121217
  3. ZOLOFT [Interacting]
     Indication: DEPRESSION
     Dosage: ZOLOFT TABS 150MG
     Route: 048
     Dates: start: 20110301, end: 20121217
  4. SEROQUEL [Interacting]
     Indication: DEPRESSION
     Dosage: SEROQUEL ^TAB 25MG^ 1 DOSE
     Route: 048
     Dates: start: 20110301, end: 20121217
  5. OMEPRAZOL [Concomitant]
  6. CONGESCOR [Concomitant]
     Dosage: CONGESCOR ^TAB 1.25MG^ 1 DOSE
     Route: 048
  7. LASIX [Concomitant]
     Dosage: 1 TAB OF 25MG
     Route: 048
  8. LOVASTATIN [Concomitant]
     Dosage: 20MG TABS
     Route: 048
  9. MINITRANS PATCH [Concomitant]
     Dosage: 10MG PATCHES
     Route: 003

REACTIONS (7)
  - Rectal haemorrhage [Unknown]
  - International normalised ratio increased [Recovering/Resolving]
  - Drug interaction [Unknown]
  - Haematoma [Recovering/Resolving]
  - Balance disorder [Unknown]
  - Fall [Unknown]
  - Gait disturbance [Unknown]
